FAERS Safety Report 16365876 (Version 2)
Quarter: 2019Q2

REPORT INFORMATION
  Report Type: Spontaneous
  Country: US (occurrence: US)
  Receive Date: 20190529
  Receipt Date: 20190610
  Transmission Date: 20190711
  Serious: No
  Sender: FDA-Public Use
  Company Number: US-BAYER-2019-104372

PATIENT
  Age: 80 Year
  Sex: Female

DRUGS (2)
  1. USANA MULTIMINERAL [Concomitant]
     Route: 048
  2. CLIMARA PRO [Suspect]
     Active Substance: ESTRADIOL\LEVONORGESTREL
     Indication: OSTEOPOROSIS
     Dosage: UNK
     Route: 062

REACTIONS (12)
  - Visual acuity reduced [Not Recovered/Not Resolved]
  - Skin wrinkling [Not Recovered/Not Resolved]
  - Application site pruritus [None]
  - Back pain [Not Recovered/Not Resolved]
  - Application site exfoliation [None]
  - Application site ulcer [Not Recovered/Not Resolved]
  - Therapeutic response unexpected [None]
  - Hypoacusis [Not Recovered/Not Resolved]
  - Therapy cessation [None]
  - Intervertebral disc injury [None]
  - Inappropriate schedule of product administration [None]
  - Dysphonia [Not Recovered/Not Resolved]

NARRATIVE: CASE EVENT DATE: 201809
